FAERS Safety Report 15561685 (Version 1)
Quarter: 2018Q4

REPORT INFORMATION
  Report Type: Spontaneous
  Country: FR (occurrence: FR)
  Receive Date: 20181029
  Receipt Date: 20181029
  Transmission Date: 20190205
  Serious: Yes (Life-Threatening, Hospitalization)
  Sender: FDA-Public Use
  Company Number: FR-PFIZER INC-2018435189

PATIENT
  Age: 39 Year
  Sex: Male
  Weight: 126 kg

DRUGS (5)
  1. TEGRETOL [Suspect]
     Active Substance: CARBAMAZEPINE
     Indication: EPILEPSY
     Dosage: UNK
     Route: 041
     Dates: start: 201802, end: 20180314
  2. PENTOTHAL [Suspect]
     Active Substance: THIOPENTAL SODIUM
     Indication: EPILEPSY
     Dosage: UNK
     Route: 041
     Dates: start: 20180310, end: 20180314
  3. DOXYCYCLINE MONOHYDRATE [Suspect]
     Active Substance: DOXYCYCLINE
     Indication: ENCEPHALITIS
     Dosage: UNK
     Route: 041
     Dates: start: 20180310, end: 20180316
  4. GARDENAL SODIUM [Suspect]
     Active Substance: PHENOBARBITAL
     Indication: EPILEPSY
     Dosage: UNK
     Route: 041
     Dates: start: 20180302, end: 20180314
  5. CEFAZOLIN [Suspect]
     Active Substance: CEFAZOLIN
     Indication: INFECTION
     Dosage: UNK
     Route: 041
     Dates: start: 20180312, end: 20180314

REACTIONS (1)
  - Drug reaction with eosinophilia and systemic symptoms [Recovering/Resolving]

NARRATIVE: CASE EVENT DATE: 20180314
